FAERS Safety Report 12464671 (Version 15)
Quarter: 2019Q2

REPORT INFORMATION
  Report Type: Spontaneous
  Country: US (occurrence: US)
  Receive Date: 20160614
  Receipt Date: 20190624
  Transmission Date: 20190711
  Serious: Yes (Hospitalization)
  Sender: FDA-Public Use
  Company Number: US-ACTELION-A-NJ2015-121779

PATIENT
  Sex: Female
  Weight: 72.56 kg

DRUGS (5)
  1. VELETRI [Suspect]
     Active Substance: EPOPROSTENOL
     Indication: PULMONARY ARTERIAL HYPERTENSION
     Dosage: 24 NG/KG, PER MIN
     Route: 042
     Dates: start: 20130529
  2. WARFARIN [Concomitant]
     Active Substance: WARFARIN
  3. SILDENAFIL. [Concomitant]
     Active Substance: SILDENAFIL
     Dosage: UNK
     Dates: end: 201512
  4. VELETRI [Suspect]
     Active Substance: EPOPROSTENOL
     Dosage: 48 NG/KG, UNK
     Route: 042
  5. VELETRI [Suspect]
     Active Substance: EPOPROSTENOL
     Dosage: 50 NG/KG, PER MIN
     Route: 042

REACTIONS (27)
  - Device occlusion [Recovered/Resolved]
  - Myalgia [Unknown]
  - Dyspnoea [Unknown]
  - Rash [Unknown]
  - Palpitations [Unknown]
  - Headache [Unknown]
  - Productive cough [Unknown]
  - Hypoaesthesia [Unknown]
  - Dyspnoea exertional [Unknown]
  - Paraesthesia oral [Unknown]
  - Muscular weakness [Unknown]
  - Nasopharyngitis [Unknown]
  - Device related thrombosis [Recovered/Resolved]
  - Muscle spasms [Unknown]
  - Pain [Unknown]
  - Catheter management [Unknown]
  - Flushing [Unknown]
  - Vision blurred [Recovered/Resolved]
  - Paraesthesia [Not Recovered/Not Resolved]
  - Device malfunction [Unknown]
  - Catheter placement [Unknown]
  - Pain in jaw [Not Recovered/Not Resolved]
  - Chest pain [Unknown]
  - Complication associated with device [Unknown]
  - Dizziness [Unknown]
  - Hospitalisation [Unknown]
  - Oropharyngeal pain [Unknown]
